FAERS Safety Report 5714631-X (Version None)
Quarter: 2008Q2

REPORT INFORMATION
  Report Type: 
  Country: None (occurrence: None)
  Receive Date: 20080423
  Receipt Date: 20080416
  Transmission Date: 20081010
  Serious: Yes (Death, Life-Threatening)
  Sender: FDA-Public Use
  Company Number: B0517660A

PATIENT
  Age: 16 Year
  Sex: Female

DRUGS (3)
  1. ALBENDAZOLE [Suspect]
     Dosage: 400MG SINGLE DOSE
     Route: 048
     Dates: start: 20070623, end: 20070623
  2. DIETHYLCARBAMAZINE CITRATE [Suspect]
     Dosage: 300MG SINGLE DOSE
     Route: 048
     Dates: start: 20070623, end: 20070623
  3. UNKNOWN DRUG [Concomitant]

REACTIONS (2)
  - ARRHYTHMIA [None]
  - SUDDEN DEATH [None]
